FAERS Safety Report 8138861 (Version 3)
Quarter: 2013Q1

REPORT INFORMATION
  Report Type: Spontaneous
  Country: JP (occurrence: JP)
  Receive Date: 20110915
  Receipt Date: 20130130
  Transmission Date: 20140127
  Serious: Yes (Other)
  Sender: FDA-Public Use
  Company Number: PHHY2011JP80987

PATIENT
  Age: 74 Year
  Sex: Male
  Weight: 62 kg

DRUGS (6)
  1. EXJADE [Suspect]
     Indication: IRON OVERLOAD
     Dosage: 625 MG, DAILY
     Route: 048
     Dates: start: 20080930, end: 20081127
  2. EXJADE [Suspect]
     Dosage: 500 MG, DAILY
     Route: 048
     Dates: start: 20081128
  3. EXJADE [Suspect]
     Dosage: UNK UKN, UNK
     Route: 048
     Dates: start: 200905, end: 200909
  4. LANZOPRAZOL [Concomitant]
  5. GEMTUZUMAB OZOGAMICIN [Concomitant]
  6. RED BLOOD CELLS, CONCENTRATED [Concomitant]
     Dosage: 3 U, EVERY 10 DAYS
     Dates: start: 20080930, end: 20090331

REACTIONS (7)
  - Renal impairment [Recovered/Resolved]
  - Blood creatinine increased [Recovered/Resolved]
  - Cholecystitis [Recovering/Resolving]
  - Protein urine present [Recovering/Resolving]
  - Alanine aminotransferase increased [Recovered/Resolved]
  - Aspartate aminotransferase increased [Recovering/Resolving]
  - Therapeutic response decreased [Unknown]
